FAERS Safety Report 6021805-X (Version None)
Quarter: 2008Q4

REPORT INFORMATION
  Report Type: 
  Country: None (occurrence: None)
  Receive Date: 20081229
  Receipt Date: 20081224
  Transmission Date: 20090506
  Serious: Yes (Life-Threatening)
  Sender: FDA-Public Use
  Company Number: JP-ASTRAZENECA-2008AP09505

PATIENT
  Age: 3 Year
  Sex: Female
  Weight: 14.3 kg

DRUGS (10)
  1. MEROPEN [Suspect]
     Indication: SEPSIS
     Route: 041
     Dates: start: 20080916, end: 20080919
  2. MEROPEN [Suspect]
     Route: 041
     Dates: start: 20080915, end: 20080915
  3. MEROPEN [Suspect]
     Route: 041
     Dates: start: 20080920, end: 20080921
  4. MEROPEN [Suspect]
     Route: 041
     Dates: start: 20080922, end: 20080926
  5. RAMINARON [Concomitant]
     Indication: DISSEMINATED INTRAVASCULAR COAGULATION
     Route: 041
     Dates: start: 20080915
  6. LASIX [Concomitant]
     Indication: OEDEMA
     Route: 040
     Dates: start: 20080918, end: 20080921
  7. LASIX [Concomitant]
     Route: 040
     Dates: start: 20080922, end: 20080924
  8. LASIX [Concomitant]
     Route: 040
     Dates: start: 20080925, end: 20080926
  9. GASTER [Concomitant]
     Indication: STRESS ULCER
     Route: 040
     Dates: start: 20080918, end: 20080921
  10. TAKEPRON [Concomitant]
     Indication: STRESS ULCER
     Route: 040
     Dates: start: 20080920

REACTIONS (2)
  - HYPERNATRAEMIA [None]
  - RENAL IMPAIRMENT [None]
